FAERS Safety Report 8130971-1 (Version None)
Quarter: 2012Q1

REPORT INFORMATION
  Report Type: 
  Country: None (occurrence: None)
  Receive Date: 20120213
  Receipt Date: 20120209
  Transmission Date: 20120608
  Serious: No
  Sender: FDA-Public Use
  Company Number: US-PFIZER INC-2012036204

PATIENT
  Sex: Female
  Weight: 58.957 kg

DRUGS (5)
  1. XALATAN [Suspect]
     Indication: MACULAR DEGENERATION
     Dosage: UNK
     Route: 047
     Dates: start: 20000101
  2. HYZAAR [Concomitant]
     Dosage: UNK
  3. NORVASC [Concomitant]
     Dosage: UNK
  4. SYNTHROID [Concomitant]
     Dosage: UNK
  5. TIMOLOL [Concomitant]
     Dosage: UNK

REACTIONS (1)
  - COORDINATION ABNORMAL [None]
